FAERS Safety Report 15989862 (Version 1)
Quarter: 2019Q1

REPORT INFORMATION
  Report Type: Spontaneous
  Country: US (occurrence: US)
  Receive Date: 20190221
  Receipt Date: 20190221
  Transmission Date: 20190418
  Serious: Yes (Other)
  Sender: FDA-Public Use
  Company Number: US-BAYER-2019-034516

PATIENT
  Age: 88 Year
  Sex: Male
  Weight: 88 kg

DRUGS (1)
  1. MILK OF MAGNESIA [Suspect]
     Active Substance: MAGNESIUM HYDROXIDE
     Indication: GASTROINTESTINAL DISORDER
     Dosage: 1 DF, QD
     Route: 048
     Dates: start: 20190210

REACTIONS (4)
  - Intestinal obstruction [Unknown]
  - Drug effect delayed [Unknown]
  - Weight decreased [Unknown]
  - Diarrhoea [Unknown]
